FAERS Safety Report 7275794-0 (Version None)
Quarter: 2011Q1

REPORT INFORMATION
  Report Type: 
  Country: None (occurrence: None)
  Receive Date: 20110204
  Receipt Date: 20110126
  Transmission Date: 20110831
  Serious: Yes (Other)
  Sender: FDA-Public Use
  Company Number: US-ROCHE-756202

PATIENT
  Age: 69 Year
  Sex: Female

DRUGS (8)
  1. AVASTIN [Suspect]
     Route: 031
     Dates: start: 20090801
  2. SIMVASTATIN [Concomitant]
  3. HYDROCHLOROTHIAZIDE [Concomitant]
  4. M.V.I. [Concomitant]
  5. METFORMIN HCL [Concomitant]
  6. AMLODIPINE [Concomitant]
  7. THYROID [Concomitant]
  8. WELLBUTRIN [Concomitant]

REACTIONS (2)
  - VISUAL IMPAIRMENT [None]
  - VERTIGO [None]
